FAERS Safety Report 19451304 (Version 2)
Quarter: 2021Q3

REPORT INFORMATION
  Report Type: Spontaneous
  Country: GB (occurrence: GB)
  Receive Date: 20210623
  Receipt Date: 20210708
  Transmission Date: 20211014
  Serious: Yes (Other)
  Sender: FDA-Public Use
  Company Number: GB-OCTA-HAPL02821GB

PATIENT
  Age: 51 Year
  Sex: Female

DRUGS (1)
  1. ASTRAZENECA COVID?19 VACCINE [Suspect]
     Active Substance: AZD-1222
     Indication: PRODUCT USED FOR UNKNOWN INDICATION
     Dosage: DOSE 1 AND DOSE 2
     Dates: start: 20210304, end: 20210520

REACTIONS (3)
  - Haemolytic anaemia [Recovered/Resolved]
  - Haemangioma of skin [Recovered/Resolved]
  - Haemorrhage [Not Recovered/Not Resolved]

NARRATIVE: CASE EVENT DATE: 20210523
